FAERS Safety Report 23937527 (Version 4)
Quarter: 2024Q3

REPORT INFORMATION
  Report Type: Report from Study
  Country: CA (occurrence: CA)
  Receive Date: 20240604
  Receipt Date: 20240912
  Transmission Date: 20241016
  Serious: Yes (Hospitalization)
  Sender: AMGEN
  Company Number: CA-AMGEN-CANSL2024094319

PATIENT
  Age: 57 Year
  Sex: Female
  Weight: 108 kg

DRUGS (4)
  1. MVASI [Suspect]
     Active Substance: BEVACIZUMAB-AWWB
     Indication: Meningioma
     Dosage: 1680 MILLIGRAM, Q4WK
     Route: 042
     Dates: start: 20221115
  2. MVASI [Suspect]
     Active Substance: BEVACIZUMAB-AWWB
     Dosage: UNK
     Route: 042
  3. MVASI [Suspect]
     Active Substance: BEVACIZUMAB-AWWB
     Dosage: UNK
     Route: 042
  4. MVASI [Suspect]
     Active Substance: BEVACIZUMAB-AWWB
     Dosage: UNK
     Route: 042

REACTIONS (5)
  - Sepsis [Recovered/Resolved]
  - Cellulitis [Recovered/Resolved]
  - Herpes zoster [Not Recovered/Not Resolved]
  - Off label use [Unknown]
  - Pain [Recovered/Resolved]

NARRATIVE: CASE EVENT DATE: 20221115
